FAERS Safety Report 12416038 (Version 3)
Quarter: 2021Q1

REPORT INFORMATION
  Report Type: Report from Study
  Country: CH (occurrence: CH)
  Receive Date: 20160530
  Receipt Date: 20210301
  Transmission Date: 20210419
  Serious: Yes (Congenital Anomaly, Other)
  Sender: FDA-Public Use
  Company Number: CH-PFIZER INC-2016277010

PATIENT

DRUGS (7)
  1. PREGABALIN. [Suspect]
     Active Substance: PREGABALIN
     Indication: MENTAL DISORDER
  2. DELORAZEPAM [Concomitant]
     Active Substance: DELORAZEPAM
     Indication: INSOMNIA
     Dosage: UNK
     Route: 064
  3. HYDROXYZINE [Concomitant]
     Active Substance: HYDROXYZINE HYDROCHLORIDE
     Dosage: UNK
     Route: 064
  4. CITALOPRAM [Concomitant]
     Active Substance: CITALOPRAM HYDROBROMIDE
     Indication: DEPRESSION
     Dosage: UNK
     Route: 064
  5. TOBACCO [Concomitant]
     Active Substance: TOBACCO LEAF
     Dosage: UNK
     Route: 064
  6. CITALOPRAM [Concomitant]
     Active Substance: CITALOPRAM HYDROBROMIDE
     Indication: INSOMNIA
  7. PREGABALIN. [Suspect]
     Active Substance: PREGABALIN
     Indication: NEURALGIA
     Dosage: 150 MG, DAILY
     Route: 064

REACTIONS (5)
  - Emanuel syndrome [Unknown]
  - Dextrocardia [Unknown]
  - Heart disease congenital [Unknown]
  - Maternal exposure during pregnancy [Unknown]
  - Cytogenetic abnormality [Unknown]
